FAERS Safety Report 6233387-8 (Version None)
Quarter: 2009Q2

REPORT INFORMATION
  Report Type: 
  Country: None (occurrence: None)
  Receive Date: 20090617
  Receipt Date: 20090615
  Transmission Date: 20091009
  Serious: Yes (Hospitalization)
  Sender: FDA-Public Use
  Company Number: CA-BRISTOL-MYERS SQUIBB COMPANY-14647010

PATIENT
  Age: 58 Year
  Sex: Male

DRUGS (2)
  1. CISPLATIN [Suspect]
     Indication: SEMINOMA
  2. ETOPOSIDE [Suspect]
     Indication: SEMINOMA

REACTIONS (1)
  - ARTERIAL THROMBOSIS [None]
